FAERS Safety Report 24909584 (Version 2)
Quarter: 2025Q1

REPORT INFORMATION
  Report Type: Spontaneous
  Country: US (occurrence: US)
  Receive Date: 20250131
  Receipt Date: 20250218
  Transmission Date: 20250408
  Serious: Yes (Death, Life-Threatening, Hospitalization, Other)
  Sender: ACCORD
  Company Number: US-Accord-466646

PATIENT
  Age: 43 Year
  Sex: Male

DRUGS (2)
  1. CAPECITABINE [Suspect]
     Active Substance: CAPECITABINE
     Indication: Rectal adenocarcinoma
     Dosage: 1000 MG/M2 (A DAY FOR 14 DAYS ON AND 7 DAYS OFF EVERY 21 DAYS)
     Route: 048
  2. OXALIPLATIN [Concomitant]
     Active Substance: OXALIPLATIN
     Indication: Rectal adenocarcinoma
     Dosage: ON DAY 1, 20 APR
     Route: 042

REACTIONS (14)
  - Septic shock [Fatal]
  - Neutropenia [Fatal]
  - Thrombocytopenia [Fatal]
  - Nausea [Unknown]
  - Vomiting [Unknown]
  - Oral pain [Unknown]
  - Dysphagia [Unknown]
  - Decreased appetite [Unknown]
  - Rash [Unknown]
  - Diarrhoea [Unknown]
  - Diabetic ketoacidosis [Unknown]
  - Infection [Fatal]
  - Pancytopenia [Fatal]
  - Hypotension [Fatal]
